FAERS Safety Report 25650612 (Version 2)
Quarter: 2025Q4

REPORT INFORMATION
  Report Type: Spontaneous
  Country: US (occurrence: US)
  Receive Date: 20250806
  Receipt Date: 20251002
  Transmission Date: 20260119
  Serious: No
  Sender: ALEXION PHARMACEUTICALS
  Company Number: US-AstraZeneca-CH-00925297AP

PATIENT
  Age: 67 Year
  Sex: Female

DRUGS (2)
  1. FASENRA [Suspect]
     Active Substance: BENRALIZUMAB
     Dosage: 1 DOSAGE FORM
     Route: 065
  2. FASENRA [Suspect]
     Active Substance: BENRALIZUMAB

REACTIONS (8)
  - Wrong technique in device usage process [Unknown]
  - Abdominal discomfort [Unknown]
  - Needle issue [Unknown]
  - Application site bruise [Unknown]
  - Aphasia [Unknown]
  - Cough [Unknown]
  - Cognitive disorder [Unknown]
  - Device leakage [Unknown]
